FAERS Safety Report 25338241 (Version 1)
Quarter: 2025Q2

REPORT INFORMATION
  Report Type: Spontaneous
  Country: ES (occurrence: ES)
  Receive Date: 20250520
  Receipt Date: 20250520
  Transmission Date: 20250716
  Serious: Yes (Other)
  Sender: ELI LILLY AND COMPANY
  Company Number: ES-ELI_LILLY_AND_COMPANY-ES202505007530

PATIENT
  Age: 83 Year
  Sex: Female

DRUGS (1)
  1. SELPERCATINIB [Suspect]
     Active Substance: SELPERCATINIB
     Indication: Thyroid cancer
     Dosage: 80 MG, BID
     Route: 065
     Dates: start: 202307

REACTIONS (1)
  - Hypertensive crisis [Recovered/Resolved]

NARRATIVE: CASE EVENT DATE: 20240501
